FAERS Safety Report 9460055 (Version 1)
Quarter: 2013Q3

REPORT INFORMATION
  Report Type: Spontaneous
  Country: FR (occurrence: FR)
  Receive Date: 20130815
  Receipt Date: 20130815
  Transmission Date: 20140515
  Serious: Yes (Other)
  Sender: FDA-Public Use
  Company Number: FR-ROCHE-1261777

PATIENT
  Age: 80 Year
  Sex: Male

DRUGS (3)
  1. LUCENTIS [Suspect]
     Indication: AGE-RELATED MACULAR DEGENERATION
     Route: 050
     Dates: start: 20110707
  2. LUCENTIS [Suspect]
     Route: 050
     Dates: start: 201201
  3. LUCENTIS [Suspect]
     Route: 050
     Dates: start: 20130620

REACTIONS (6)
  - Myalgia [Recovered/Resolved]
  - Motor dysfunction [Recovered/Resolved]
  - Arthralgia [Recovered/Resolved]
  - Weight decreased [Unknown]
  - C-reactive protein increased [Unknown]
  - Red blood cell sedimentation rate increased [Unknown]
